FAERS Safety Report 4879335-4 (Version None)
Quarter: 2006Q1

REPORT INFORMATION
  Report Type: 
  Country: None (occurrence: None)
  Receive Date: 20060112
  Receipt Date: 20060103
  Transmission Date: 20060701
  Serious: Yes (Hospitalization)
  Sender: FDA-Public Use
  Company Number: US-MERCK-0601USA00190

PATIENT
  Age: 44 Year
  Sex: Male

DRUGS (2)
  1. ZOCOR [Suspect]
     Indication: BLOOD CHOLESTEROL INCREASED
     Route: 048
     Dates: start: 20040101, end: 20051226
  2. ATENOLOL [Concomitant]
     Indication: HYPERTENSION
     Route: 065

REACTIONS (5)
  - ASTHENIA [None]
  - DIZZINESS [None]
  - HEADACHE [None]
  - TREMOR [None]
  - WHITE BLOOD CELL COUNT INCREASED [None]
